FAERS Safety Report 5270808-1 (Version None)
Quarter: 2007Q1

REPORT INFORMATION
  Report Type: 
  Country: None (occurrence: None)
  Receive Date: 20070319
  Receipt Date: 20070319
  Transmission Date: 20070707
  Serious: Yes (Hospitalization, Disabling)
  Sender: FDA-Public Use
  Company Number: None

PATIENT
  Sex: Female
  Weight: 55.7924 kg

DRUGS (1)
  1. MIRENA [Suspect]
     Dates: start: 20060502, end: 20070222

REACTIONS (2)
  - IUD MIGRATION [None]
  - VAGINAL HAEMORRHAGE [None]
